FAERS Safety Report 8519240-5 (Version None)
Quarter: 2012Q3

REPORT INFORMATION
  Report Type: 
  Country: None (occurrence: None)
  Receive Date: 20120718
  Receipt Date: 20120515
  Transmission Date: 20120928
  Serious: No
  Sender: FDA-Public Use
  Company Number: US-009507513-1207USA002670

PATIENT

DRUGS (1)
  1. DR. SCHOLL'S NO ACTIVE INGREDIENT [Suspect]
     Indication: PRODUCT USED FOR UNKNOWN INDICATION

REACTIONS (2)
  - PAIN IN EXTREMITY [None]
  - THERAPEUTIC PRODUCT INEFFECTIVE [None]
